FAERS Safety Report 4867001-0 (Version None)
Quarter: 2005Q4

REPORT INFORMATION
  Report Type: 
  Country: None (occurrence: None)
  Receive Date: 20051222
  Receipt Date: 20051212
  Transmission Date: 20060501
  Serious: Yes (Death)
  Sender: FDA-Public Use
  Company Number: GXKR2005GB02055

PATIENT
  Age: 45 Year
  Sex: Female

DRUGS (9)
  1. DIAZEPAM [Suspect]
     Dosage: 2 MG
  2. CITALOPRAM HYDROBROMIDE [Suspect]
     Dosage: 20 MG, ORAL
     Route: 048
  3. NOVORAPID (INSULIN ASPART) [Suspect]
     Indication: DIABETES MELLITUS
     Dosage: SUBCUTANEOUS
     Route: 058
  4. ZOPICLONE (ZOPICLONE) [Suspect]
     Dosage: 7.5 MG
     Dates: start: 20041201
  5. LANTUS [Suspect]
     Dosage: SUBCUTANEOUS
     Route: 058
  6. PYRIDOXINE (PYRIDOXINE) [Concomitant]
  7. LIOTHYRONINE SODIUM [Concomitant]
  8. LEVOTHYROXINE SODIUM [Concomitant]
  9. ETHANOL (ETHANOL) [Concomitant]

REACTIONS (2)
  - COMPLETED SUICIDE [None]
  - INTENTIONAL OVERDOSE [None]
